FAERS Safety Report 7642889-9 (Version None)
Quarter: 2011Q3

REPORT INFORMATION
  Report Type: 
  Country: None (occurrence: None)
  Receive Date: 20110728
  Receipt Date: 20110718
  Transmission Date: 20111222
  Serious: Yes (Other)
  Sender: FDA-Public Use
  Company Number: PHHY2011US57096

PATIENT
  Sex: Female

DRUGS (5)
  1. GILENYA [Suspect]
     Indication: MULTIPLE SCLEROSIS
     Dosage: 0.5 MG, DAILY
     Route: 048
     Dates: start: 20110107
  2. ALBUTEROL SULFATE AUTOHALER [Concomitant]
     Indication: COUGH
     Dosage: 90 UG/INHALE RARELY
  3. SERTRALINE HYDROCHLORIDE [Concomitant]
     Dosage: 25 MG/DAY
     Dates: end: 20110401
  4. PROVIGIL [Concomitant]
     Dosage: 200 MG, BID
     Route: 048
     Dates: end: 20110401
  5. ASTHAMNEX [Concomitant]
     Indication: COUGH

REACTIONS (3)
  - COUGH [None]
  - ASTHMA [None]
  - DYSPNOEA [None]
